FAERS Safety Report 5910207-X (Version None)
Quarter: 2008Q4

REPORT INFORMATION
  Report Type: 
  Country: None (occurrence: None)
  Receive Date: 20081007
  Receipt Date: 20071011
  Transmission Date: 20090506
  Serious: No
  Sender: FDA-Public Use
  Company Number: US-ASTRAZENECA-2007UW23673

PATIENT
  Age: 68 Year
  Sex: Female
  Weight: 101.6 kg

DRUGS (3)
  1. ARIMIDEX [Suspect]
     Indication: BREAST CANCER
     Route: 048
     Dates: start: 20070901
  2. TOPROL-XL [Concomitant]
  3. VYTORIN [Concomitant]

REACTIONS (3)
  - CONSTIPATION [None]
  - FUNGAL INFECTION [None]
  - HOT FLUSH [None]
